FAERS Safety Report 19425900 (Version 4)
Quarter: 2021Q3

REPORT INFORMATION
  Report Type: Report from Study
  Country: GR (occurrence: GR)
  Receive Date: 20210616
  Receipt Date: 20210823
  Transmission Date: 20211014
  Serious: Yes (Other)
  Sender: FDA-Public Use
  Company Number: GR-SA-2021SA197578

PATIENT
  Age: 7 Year
  Sex: Male
  Weight: 38 kg

DRUGS (9)
  1. DEXAMETHASONE. [Suspect]
     Active Substance: DEXAMETHASONE
     Indication: PRECURSOR B-LYMPHOBLASTIC LYMPHOMA
     Dosage: 10 MG/M2; DAYS ?3, ?2, ?1, 1,8, AND 15 FOR INDUCTION PERIODS
     Route: 042
     Dates: start: 20210607, end: 20210609
  2. MONTELUKAST [Concomitant]
     Active Substance: MONTELUKAST SODIUM
     Indication: PROPHYLAXIS
     Dosage: TOTAL DAILY DOSE: 5 MG
     Route: 048
     Dates: start: 20210610, end: 20210610
  3. PARACETAMOL [Concomitant]
     Active Substance: ACETAMINOPHEN
     Indication: PROPHYLAXIS
     Dosage: TOTAL DAILY DOSE:500 MG
     Route: 048
     Dates: start: 20210610, end: 20210610
  4. DEXAMETHASONE. [Concomitant]
     Active Substance: DEXAMETHASONE
     Dosage: TOTAL DAILY DOSE: 12 MG
     Route: 042
     Dates: start: 20210610, end: 20210610
  5. FENISTIL [Concomitant]
     Active Substance: DIMETHINDENE
     Indication: PROPHYLAXIS
     Dosage: TOTAL DAILY DOSE: 3.8 MG
     Route: 048
     Dates: start: 20210610, end: 20210610
  6. SOLU?CORTEF [Concomitant]
     Active Substance: HYDROCORTISONE SODIUM SUCCINATE
     Dosage: UNK
     Route: 042
     Dates: start: 20210610, end: 20210610
  7. ISATUXIMAB [Suspect]
     Active Substance: ISATUXIMAB
     Indication: PRECURSOR B-LYMPHOBLASTIC LYMPHOMA
     Dosage: 20 MG/KG, QW, START TIME: 13:55, STOP TIME: 15:45
     Route: 042
     Dates: start: 20210610, end: 20210610
  8. DEXAMETHASONE. [Concomitant]
     Active Substance: DEXAMETHASONE
     Indication: PROPHYLAXIS
     Dosage: UNK
     Route: 042
     Dates: start: 20210607
  9. ISATUXIMAB [Suspect]
     Active Substance: ISATUXIMAB
     Dosage: 20 MG/KG, QW, START TIME: 16:45, STOP TIME: 21:50
     Route: 042
     Dates: start: 20210610, end: 20210610

REACTIONS (1)
  - Hypertension [Recovered/Resolved]

NARRATIVE: CASE EVENT DATE: 20210610
